FAERS Safety Report 22342674 (Version 2)
Quarter: 2024Q3

REPORT INFORMATION
  Report Type: Report from Study
  Country: US (occurrence: US)
  Receive Date: 20230519
  Receipt Date: 20240830
  Transmission Date: 20241016
  Serious: Yes (Other)
  Sender: NOVARTIS
  Company Number: US-002147023-NVSC2023US110291

PATIENT
  Sex: Female

DRUGS (1)
  1. ENTRESTO [Suspect]
     Active Substance: SACUBITRIL\VALSARTAN
     Indication: Product used for unknown indication
     Dosage: UNK, 24-26 BID
     Route: 048

REACTIONS (6)
  - Pericardial effusion [Unknown]
  - Dyspnoea [Unknown]
  - Pulmonary congestion [Unknown]
  - Cough [Unknown]
  - Chest pain [Unknown]
  - Blood pressure decreased [Unknown]
